FAERS Safety Report 7656955-5 (Version None)
Quarter: 2011Q3

REPORT INFORMATION
  Report Type: 
  Country: None (occurrence: None)
  Receive Date: 20110729
  Receipt Date: 20110718
  Transmission Date: 20111222
  Serious: Yes (Other)
  Sender: FDA-Public Use
  Company Number: HA11-168-AE

PATIENT
  Age: 58 Year
  Sex: Male

DRUGS (1)
  1. NAPROXEN [Suspect]
     Dosage: ORAL
     Route: 048

REACTIONS (2)
  - PNEUMONIA [None]
  - INFECTION [None]
